FAERS Safety Report 10248723 (Version 1)
Quarter: 2014Q2

REPORT INFORMATION
  Report Type: Spontaneous
  Country: US (occurrence: None)
  Receive Date: 20140618
  Receipt Date: 20140618
  Transmission Date: 20141212
  Serious: Yes (Other)
  Sender: FDA-Public Use
  Company Number: None

PATIENT
  Age: 16 Year
  Sex: Female
  Weight: 65.77 kg

DRUGS (1)
  1. TIZANIDINE [Suspect]
     Dosage: 1/4 - 1/2 TAB  TAKEN 2-3 TIMES  PO
     Route: 048

REACTIONS (2)
  - Fatigue [None]
  - Jaundice [None]
